FAERS Safety Report 8851166 (Version 2)
Quarter: 2012Q4

REPORT INFORMATION
  Report Type: 
  Country: US (occurrence: US)
  Receive Date: 20121019
  Receipt Date: 20121024
  Transmission Date: 20130627
  Serious: No
  Sender: FDA-Public Use
  Company Number: US-VERTEX PHARMACEUTICAL INC.-2012-022792

PATIENT
  Sex: Female
  Weight: 90 kg

DRUGS (14)
  1. VX-950 [Suspect]
     Indication: HEPATITIS C
     Dosage: 750 mg, tid
     Dates: start: 20121005
  2. PEGASYS [Concomitant]
     Indication: HEPATITIS C
     Dosage: 180 ?g, UNK
     Route: 058
     Dates: start: 20121005
  3. RIBAPAK [Concomitant]
     Indication: HEPATITIS C
     Dosage: 600mg, 400 mg
     Dates: start: 20121005
  4. LOSARTAN-HCTZ [Concomitant]
     Dosage: 1 DF, qd
     Route: 048
  5. GLYBURIDE [Concomitant]
     Dosage: 1 DF, qd
     Route: 048
  6. COREG CR [Concomitant]
     Dosage: 1 DF, qd
     Route: 048
  7. LEVEMIR [Concomitant]
     Dosage: 100 units/ml vial
  8. VICTOZA [Concomitant]
     Dosage: 3-pak 18mg/3ml Pen
  9. SPIRONOLACTONE [Concomitant]
     Dosage: 1 DF, qd
     Route: 048
  10. KLOR-CON M 20 [Concomitant]
     Dosage: 1 DF, qd
     Route: 048
  11. LEVOTHYROXINE [Concomitant]
     Dosage: 1 DF, qd
     Route: 048
  12. OS-CAL ULTRA                       /00751501/ [Concomitant]
     Dosage: 1 DF, qd
     Route: 048
  13. TRIPHROCAPS [Concomitant]
     Dosage: 1 DF, qd
     Route: 048
  14. PRESERVISION EYE VITAMIN AND MINERAL SUPPL. [Concomitant]
     Dosage: 1 DF, qd
     Route: 048

REACTIONS (3)
  - Blood glucose decreased [Unknown]
  - Hypoaesthesia [Unknown]
  - Pruritus [Unknown]
